FAERS Safety Report 9158284 (Version 2)
Quarter: 2015Q3

REPORT INFORMATION
  Report Type: Report from Study
  Country: FR (occurrence: FR)
  Receive Date: 20130312
  Receipt Date: 20150708
  Transmission Date: 20151125
  Serious: Yes (Hospitalization)
  Sender: FDA-Public Use
  Company Number: FR-ROCHE-1199928

PATIENT
  Age: 70 Year
  Sex: Female
  Weight: 67 kg

DRUGS (13)
  1. TOCILIZUMAB [Suspect]
     Active Substance: TOCILIZUMAB
     Dosage: PATIENT RECEIVED 280 MG ON FOLLOING DATES: 01/AUG/2013, 29/AUG/2013
     Route: 042
     Dates: start: 20130703
  2. TOCILIZUMAB [Suspect]
     Active Substance: TOCILIZUMAB
     Route: 042
     Dates: start: 20140604
  3. CORTANCYL [Concomitant]
     Active Substance: PREDNISONE
     Route: 065
     Dates: start: 20121019
  4. CORTANCYL [Concomitant]
     Active Substance: PREDNISONE
     Route: 065
  5. TOCILIZUMAB [Suspect]
     Active Substance: TOCILIZUMAB
     Dosage: PATIENT RECEIVED 250 MG ON FOLLOING DATES: 06/JUN/2013
     Route: 042
     Dates: start: 20130507
  6. TOCILIZUMAB [Suspect]
     Active Substance: TOCILIZUMAB
     Dosage: PATIENT RECEIVED 530 MG ON FOLLOING DATES:01/JUL/2014, 29/JUL/2014, 26/AUG/2014
     Route: 042
     Dates: start: 20140507
  7. CORTANCYL [Concomitant]
     Active Substance: PREDNISONE
     Route: 065
     Dates: start: 20120823
  8. TOCILIZUMAB [Suspect]
     Active Substance: TOCILIZUMAB
     Route: 042
     Dates: start: 20130410
  9. CORTANCYL [Concomitant]
     Active Substance: PREDNISONE
     Route: 065
     Dates: start: 20120410
  10. TOCILIZUMAB [Suspect]
     Active Substance: TOCILIZUMAB
     Dosage: PATIENT RECEIVED 260 MG ON FOLLOING DATES: 03/OCT/2013, 21/NOV/2013, 19/DEC/2013, 16/JAN/2014, 13/FE
     Route: 042
     Dates: start: 20130926
  11. TOCILIZUMAB [Suspect]
     Active Substance: TOCILIZUMAB
     Indication: RHEUMATOID ARTHRITIS
     Dosage: PATIENT RECEIVED 540 MG ON FOLLOING DATES: 29/MAY/2012, 28/JUN/2012, 26/JUL/2012, 23/AUG/2012, 20/SE
     Route: 042
     Dates: start: 20120430
  12. CORTANCYL [Concomitant]
     Active Substance: PREDNISONE
     Route: 065
     Dates: start: 20120726
  13. CORTANCYL [Concomitant]
     Active Substance: PREDNISONE
     Route: 065
     Dates: start: 20120920

REACTIONS (4)
  - Neutropenia [Not Recovered/Not Resolved]
  - Oral herpes [Recovered/Resolved]
  - Influenza [Recovered/Resolved]
  - Device dislocation [Recovered/Resolved]

NARRATIVE: CASE EVENT DATE: 201208
